FAERS Safety Report 6441241-1 (Version None)
Quarter: 2009Q4

REPORT INFORMATION
  Report Type: 
  Country: None (occurrence: None)
  Receive Date: 20091116
  Receipt Date: 20091102
  Transmission Date: 20100525
  Serious: Yes (Hospitalization, Disabling)
  Sender: FDA-Public Use
  Company Number: GB-AMGEN-US227311

PATIENT
  Sex: Female
  Weight: 65.9 kg

DRUGS (5)
  1. ENBREL [Suspect]
     Indication: ANKYLOSING SPONDYLITIS
     Route: 058
     Dates: start: 20061222, end: 20070524
  2. ENBREL [Suspect]
     Indication: JUVENILE ARTHRITIS
  3. AMOXICILLIN [Concomitant]
     Route: 048
     Dates: start: 20070207, end: 20070214
  4. LEFLUNOMIDE [Concomitant]
     Route: 048
     Dates: start: 20050526
  5. LEFLUNOMIDE [Concomitant]

REACTIONS (3)
  - DEMYELINATION [None]
  - OPTIC NEURITIS [None]
  - TREMOR [None]
